FAERS Safety Report 11673618 (Version 1)
Quarter: 2015Q4

REPORT INFORMATION
  Report Type: Spontaneous
  Country: US (occurrence: US)
  Receive Date: 20151027
  Receipt Date: 20151027
  Transmission Date: 20160304
  Serious: No
  Sender: FDA-Public Use
  Company Number: US-ELI_LILLY_AND_COMPANY-US201007005375

PATIENT
  Age: 27 Year
  Sex: Male

DRUGS (2)
  1. FORTEO [Suspect]
     Active Substance: TERIPARATIDE
     Indication: OSTEOPOROSIS
     Dosage: 20 UG, DAILY (1/D)
     Dates: start: 20100720
  2. HUMIRA [Concomitant]
     Active Substance: ADALIMUMAB

REACTIONS (6)
  - Heart rate increased [Recovered/Resolved]
  - Panic attack [Unknown]
  - Dyspnoea [Unknown]
  - Spinal pain [Unknown]
  - Neck pain [Unknown]
  - Chest pain [Unknown]

NARRATIVE: CASE EVENT DATE: 20100720
